FAERS Safety Report 23376271 (Version 1)
Quarter: 2024Q1

REPORT INFORMATION
  Report Type: Spontaneous
  Country: NO (occurrence: None)
  Receive Date: 20240108
  Receipt Date: 20240108
  Transmission Date: 20240410
  Serious: Yes (Death)
  Sender: FDA-Public Use
  Company Number: 2024A001453

PATIENT
  Age: 69 Year
  Sex: Female

DRUGS (8)
  1. FASLODEX [Suspect]
     Active Substance: FULVESTRANT
     Indication: Breast cancer female
     Dosage: 250.0MG INTERMITTENT
     Route: 030
  2. PIQRAY [Suspect]
     Active Substance: ALPELISIB
     Indication: Breast cancer female
     Route: 048
  3. ZYRTEC [Concomitant]
     Active Substance: CETIRIZINE HYDROCHLORIDE
  4. LEVOTHYROXINE SODIUM [Concomitant]
     Active Substance: LEVOTHYROXINE SODIUM
  5. ELIQUIS [Concomitant]
     Active Substance: APIXABAN
  6. BUMETANIDE [Concomitant]
     Active Substance: BUMETANIDE
  7. PANTOPRAZOLE SODIUM [Concomitant]
     Active Substance: PANTOPRAZOLE SODIUM
  8. OXYCONTIN [Concomitant]
     Active Substance: OXYCODONE HYDROCHLORIDE

REACTIONS (4)
  - Hepatic failure [Fatal]
  - Drug-induced liver injury [Fatal]
  - Electrolyte imbalance [Fatal]
  - Jaundice [Fatal]

NARRATIVE: CASE EVENT DATE: 20231114
